FAERS Safety Report 8270524-8 (Version None)
Quarter: 2012Q2

REPORT INFORMATION
  Report Type: 
  Country: None (occurrence: None)
  Receive Date: 20120410
  Receipt Date: 20120402
  Transmission Date: 20120825
  Serious: Yes (Other)
  Sender: FDA-Public Use
  Company Number: US-BAYER-2011-073212

PATIENT
  Age: 39 Year
  Sex: Female
  Weight: 146.3 kg

DRUGS (13)
  1. LISINOPRIL [Concomitant]
     Dosage: UNK
     Dates: start: 20070101, end: 20110101
  2. CELEXA [Concomitant]
     Indication: ANXIETY
  3. MAXALT [Concomitant]
     Indication: MIGRAINE
  4. IRON [Concomitant]
     Indication: ANAEMIA
  5. POTASSIUM CHLORIDE [Concomitant]
     Dosage: UNK
     Dates: start: 20080101, end: 20110101
  6. VITAMIN B COMPLEX CAP [Concomitant]
  7. ACIPHEX [Concomitant]
  8. MULTI-VITAMIN [Concomitant]
  9. TRAMADOL HCL [Concomitant]
     Indication: PAIN
  10. LASIX [Concomitant]
     Dosage: UNK
     Dates: start: 20080101, end: 20110101
  11. IBUPROFEN [Concomitant]
     Indication: PAIN
  12. YAZ [Suspect]
     Indication: PREMENSTRUAL SYNDROME
     Dosage: UNK
     Dates: start: 20080101, end: 20090101
  13. XANAX [Concomitant]
     Indication: ANXIETY

REACTIONS (10)
  - DYSPEPSIA [None]
  - ANHEDONIA [None]
  - PAIN [None]
  - GENERAL PHYSICAL HEALTH DETERIORATION [None]
  - EMOTIONAL DISTRESS [None]
  - GALLBLADDER DISORDER [None]
  - ANXIETY [None]
  - MENTAL DISORDER [None]
  - INJURY [None]
  - CHOLELITHIASIS [None]
